FAERS Safety Report 21634292 (Version 2)
Quarter: 2022Q4

REPORT INFORMATION
  Report Type: Spontaneous
  Country: CN (occurrence: CN)
  Receive Date: 20221123
  Receipt Date: 20221130
  Transmission Date: 20230113
  Serious: Yes (Other)
  Sender: FDA-Public Use
  Company Number: CN-MYLANLABS-2022M1130659

PATIENT
  Age: 57 Year
  Sex: Female

DRUGS (5)
  1. PREGABALIN [Suspect]
     Active Substance: PREGABALIN
     Indication: Herpes zoster
     Dosage: UNK
     Route: 065
     Dates: start: 20210405
  2. ACYCLOVIR [Suspect]
     Active Substance: ACYCLOVIR
     Indication: Herpes zoster
     Dosage: UNK
     Route: 065
     Dates: start: 20210405
  3. VALACYCLOVIR [Suspect]
     Active Substance: VALACYCLOVIR HYDROCHLORIDE
     Indication: Herpes zoster
     Dosage: UNK
     Route: 065
     Dates: start: 20210405
  4. HERBALS [Suspect]
     Active Substance: HERBALS
     Indication: Herpes zoster
     Dosage: UNK
     Route: 065
     Dates: start: 20210405
  5. DEXAMETHASONE [Concomitant]
     Active Substance: DEXAMETHASONE
     Indication: Stevens-Johnson syndrome
     Dosage: UNK
     Route: 042

REACTIONS (4)
  - Stevens-Johnson syndrome [Recovering/Resolving]
  - Arrhythmia [Unknown]
  - Abdominal discomfort [Unknown]
  - Hypotension [Unknown]

NARRATIVE: CASE EVENT DATE: 20210419
